FAERS Safety Report 14689372 (Version 2)
Quarter: 2018Q1

REPORT INFORMATION
  Report Type: Spontaneous
  Country: JP (occurrence: JP)
  Receive Date: 20180328
  Receipt Date: 20180329
  Transmission Date: 20180509
  Serious: Yes (Death)
  Sender: FDA-Public Use
  Company Number: JP-PFIZER INC-2018127088

PATIENT
  Age: 65 Year
  Sex: Male

DRUGS (1)
  1. RAPALIMUS [Suspect]
     Active Substance: SIROLIMUS
     Indication: RECTAL CANCER
     Dosage: 1 MG, WEEKLY
     Route: 048
     Dates: start: 20180109

REACTIONS (2)
  - Off label use [Unknown]
  - Malignant neoplasm progression [Fatal]

NARRATIVE: CASE EVENT DATE: 20180109
